FAERS Safety Report 7624246-4 (Version None)
Quarter: 2011Q3

REPORT INFORMATION
  Report Type: 
  Country: None (occurrence: None)
  Receive Date: 20110720
  Receipt Date: 20090930
  Transmission Date: 20111222
  Serious: Yes (Other)
  Sender: FDA-Public Use
  Company Number: US-BAYER-2011-009754

PATIENT
  Age: 40 Year
  Sex: Male
  Weight: 100 kg

DRUGS (18)
  1. TRASYLOL [Suspect]
     Indication: AORTIC VALVE REPLACEMENT
     Dosage: 1 ML, TEST DOSE
     Route: 042
     Dates: start: 20040217, end: 20040217
  2. ZOLPIDEM [Concomitant]
  3. RED BLOOD CELLS [Concomitant]
     Dosage: 1 U, UNK
     Route: 042
     Dates: start: 20040217
  4. ASPIRIN [Concomitant]
     Dosage: 81 MG, QD
     Route: 048
  5. HEPARIN [Concomitant]
     Dosage: 33000 U, UNK
     Route: 042
     Dates: start: 20040217
  6. ANCEF [Concomitant]
     Dosage: 2 G, UNK
     Route: 042
  7. TRASYLOL [Suspect]
     Dosage: 50 ML/HR INFUSION
     Route: 042
     Dates: start: 20040217, end: 20040217
  8. LIPITOR [Concomitant]
     Dosage: 40 MG, HS
     Route: 048
  9. PLATELETS [Concomitant]
     Dosage: 1 U, UNK
     Route: 042
     Dates: start: 20040217
  10. COUMADIN [Concomitant]
     Dosage: 5 MG, QD
     Route: 048
  11. PREVACID [Concomitant]
     Dosage: UNK UNK, PRN
     Route: 048
  12. PROTAMINE SULFATE [Concomitant]
     Dosage: 370 MG, UNK
     Route: 042
     Dates: start: 20040217
  13. TRASYLOL [Suspect]
     Dosage: 200 ML, LOADING DOSE
     Route: 042
     Dates: start: 20040217, end: 20040217
  14. ATENOLOL [Concomitant]
     Dosage: 25 MG, QD
     Route: 048
  15. MIDAZOLAM HCL [Concomitant]
     Dosage: 8 MG, UNK
     Route: 042
     Dates: start: 20040217
  16. INSULIN [Concomitant]
     Dosage: 2 U, UNK
     Route: 042
     Dates: start: 20040217
  17. ZEMURON [Concomitant]
     Dosage: 50 MG, UNK
     Route: 042
     Dates: start: 20040217
  18. CRYOPRECIPITATES [Concomitant]
     Dosage: 1 U, UNK
     Route: 042
     Dates: start: 20040217

REACTIONS (13)
  - MULTI-ORGAN FAILURE [None]
  - RENAL FAILURE [None]
  - RENAL INJURY [None]
  - ANXIETY [None]
  - NERVOUSNESS [None]
  - UNEVALUABLE EVENT [None]
  - FEAR [None]
  - PAIN [None]
  - ANHEDONIA [None]
  - EMOTIONAL DISTRESS [None]
  - FEAR OF DEATH [None]
  - DEPRESSION [None]
  - INJURY [None]
